FAERS Safety Report 19029292 (Version 2)
Quarter: 2021Q2

REPORT INFORMATION
  Report Type: Spontaneous
  Country: IT (occurrence: IT)
  Receive Date: 20210319
  Receipt Date: 20210420
  Transmission Date: 20210717
  Serious: Yes (Other)
  Sender: FDA-Public Use
  Company Number: IT-AUROBINDO-AUR-APL-2021-010928

PATIENT
  Age: 41 Year
  Sex: Female
  Weight: 63 kg

DRUGS (14)
  1. PACLITAXEL. [Suspect]
     Active Substance: PACLITAXEL
     Dosage: 80 MILLIGRAM/SQ. METER, EVERY WEEK
     Route: 042
     Dates: start: 20170925, end: 20171127
  2. LETROZOLE. [Suspect]
     Active Substance: LETROZOLE
     Dosage: 2.5 MILLIGRAM, ONCE A DAY (ONGOING)
     Route: 048
     Dates: start: 20180413
  3. TRASTUZUMAB EMTANSINE [Suspect]
     Active Substance: ADO-TRASTUZUMAB EMTANSINE
     Indication: BREAST CANCER
     Dosage: 3.6 MILLIGRAM/KILOGRAM, 3 WEEKS
     Route: 042
     Dates: start: 20180108, end: 20180312
  4. TRASTUZUMAB. [Suspect]
     Active Substance: TRASTUZUMAB
     Indication: BREAST CANCER
     Dosage: 8 MILLIGRAM/SQ. METER, 3 WEEKS
     Route: 042
     Dates: start: 20170619, end: 20171218
  5. PALBOCICLIB [Suspect]
     Active Substance: PALBOCICLIB
     Indication: BREAST CANCER
     Dosage: 125 MILLIGRAM, ONCE A DAY
     Route: 048
     Dates: start: 20180430, end: 20180807
  6. PANTOPRAZOLE [Concomitant]
     Active Substance: PANTOPRAZOLE
     Indication: PRODUCT USED FOR UNKNOWN INDICATION
     Dosage: UNK (ONGOING = CHECKED)
     Route: 065
     Dates: start: 20180507
  7. ZOMETA [Concomitant]
     Active Substance: ZOLEDRONIC ACID
     Indication: PRODUCT USED FOR UNKNOWN INDICATION
     Dosage: UNK (ONGOING = CHECKED)
     Route: 065
     Dates: start: 20170522
  8. LETROZOLE. [Suspect]
     Active Substance: LETROZOLE
     Indication: BREAST CANCER
     Dosage: 2.5 MILLIGRAM, ONCE A DAY
     Route: 048
     Dates: start: 20170320, end: 20170421
  9. DICLOFENAC [Concomitant]
     Active Substance: DICLOFENAC
     Indication: PRODUCT USED FOR UNKNOWN INDICATION
     Dosage: UNK (ONGOING = CHECKED)
     Route: 065
     Dates: start: 20180507
  10. PACLITAXEL. [Suspect]
     Active Substance: PACLITAXEL
     Indication: BREAST CANCER
     Dosage: 80 MILLIGRAM/SQ. METER, EVERY WEEK
     Route: 042
     Dates: start: 20170522, end: 20170807
  11. PERTUZUMAB. [Suspect]
     Active Substance: PERTUZUMAB
     Indication: BREAST CANCER
     Dosage: 840 MILLIGRAM, 3 WEEKS
     Route: 042
     Dates: start: 20170619, end: 20170619
  12. PERTUZUMAB. [Suspect]
     Active Substance: PERTUZUMAB
     Dosage: 420 MILLIGRAM, 3 WEEKS
     Route: 042
     Dates: start: 20170719, end: 20181218
  13. TRIPTORELIN [Suspect]
     Active Substance: TRIPTORELIN
     Indication: BREAST CANCER
     Dosage: 3.75 GRAM, 4 WEEK
     Route: 030
     Dates: start: 20180413
  14. PARACETAMOL [Concomitant]
     Active Substance: ACETAMINOPHEN
     Indication: PRODUCT USED FOR UNKNOWN INDICATION
     Dosage: UNK (ONGOING = CHECKED)
     Route: 065
     Dates: start: 20180507

REACTIONS (1)
  - Thrombocytopenia [Recovered/Resolved]

NARRATIVE: CASE EVENT DATE: 20180521
